FAERS Safety Report 15356835 (Version 2)
Quarter: 2018Q4

REPORT INFORMATION
  Report Type: Spontaneous
  Country: US (occurrence: US)
  Receive Date: 20180906
  Receipt Date: 20181016
  Transmission Date: 20190204
  Serious: No
  Sender: FDA-Public Use
  Company Number: US-SA-2018SA248525

PATIENT
  Age: 69 Year
  Sex: Female

DRUGS (1)
  1. DUPIXENT [Suspect]
     Active Substance: DUPILUMAB
     Indication: DERMATITIS ATOPIC
     Dosage: 300 MG, QOW
     Route: 058
     Dates: start: 20180509, end: 20180911

REACTIONS (10)
  - Pruritus [Unknown]
  - Eye disorder [Unknown]
  - Skin burning sensation [Unknown]
  - Ocular hyperaemia [Unknown]
  - Eczema [Unknown]
  - Discomfort [Unknown]
  - Drug ineffective [Unknown]
  - Lacrimation increased [Unknown]
  - Condition aggravated [Unknown]
  - Therapeutic response decreased [Unknown]

NARRATIVE: CASE EVENT DATE: 201807
